FAERS Safety Report 20810669 (Version 1)
Quarter: 2022Q2

REPORT INFORMATION
  Report Type: Report from Study
  Country: US (occurrence: US)
  Receive Date: 20220510
  Receipt Date: 20220510
  Transmission Date: 20220721
  Serious: Yes (Other)
  Sender: FDA-Public Use
  Company Number: US-SUNOVION-2022SUN001447

PATIENT
  Age: 69 Year
  Sex: Female

DRUGS (1)
  1. KYNMOBI [Suspect]
     Active Substance: APOMORPHINE HYDROCHLORIDE
     Dosage: 10 MG
     Route: 060
     Dates: start: 20220504

REACTIONS (9)
  - Syncope [Recovered/Resolved]
  - Dysstasia [Recovered/Resolved]
  - Blood pressure increased [Recovered/Resolved]
  - Pallor [Recovered/Resolved]
  - Flushing [Recovered/Resolved]
  - Eructation [Recovered/Resolved]
  - Nausea [Recovered/Resolved]
  - Somnolence [Recovered/Resolved]
  - Dizziness [Recovered/Resolved]

NARRATIVE: CASE EVENT DATE: 20220504
